FAERS Safety Report 7265363-0 (Version None)
Quarter: 2011Q1

REPORT INFORMATION
  Report Type: 
  Country: None (occurrence: None)
  Receive Date: 20110131
  Receipt Date: 20110119
  Transmission Date: 20110831
  Serious: Yes (Other)
  Sender: FDA-Public Use
  Company Number: US-ASTRAZENECA-2010SE50842

PATIENT
  Age: 83 Year
  Sex: Female

DRUGS (1)
  1. NEXIUM [Suspect]
     Route: 048

REACTIONS (4)
  - TRANSIENT ISCHAEMIC ATTACK [None]
  - GAIT DISTURBANCE [None]
  - ABDOMINAL DISCOMFORT [None]
  - MALAISE [None]
